FAERS Safety Report 6871466-2 (Version None)
Quarter: 2010Q3

REPORT INFORMATION
  Report Type: 
  Country: None (occurrence: None)
  Receive Date: 20100723
  Receipt Date: 20100713
  Transmission Date: 20110219
  Serious: Yes (Life-Threatening, Hospitalization, Disabling)
  Sender: FDA-Public Use
  Company Number: CA-BAYER-201028150NA

PATIENT
  Age: 40 Year
  Sex: Female
  Weight: 68 kg

DRUGS (2)
  1. AVELOX [Suspect]
     Indication: PRODUCT USED FOR UNKNOWN INDICATION
  2. TYLENOL [Concomitant]

REACTIONS (6)
  - ABDOMINAL PAIN UPPER [None]
  - HEPATIC PAIN [None]
  - HEPATOMEGALY [None]
  - PANCREATIC ENLARGEMENT [None]
  - PANCREATITIS ACUTE [None]
  - WEIGHT DECREASED [None]
